FAERS Safety Report 10783622 (Version 2)
Quarter: 2015Q1

REPORT INFORMATION
  Report Type: Spontaneous
  Country: JP (occurrence: JP)
  Receive Date: 20150210
  Receipt Date: 20150220
  Transmission Date: 20150721
  Serious: Yes (Other)
  Sender: FDA-Public Use
  Company Number: JP-SUCAMPO AG-SPI201500059

PATIENT
  Age: 75 Year
  Sex: Male

DRUGS (14)
  1. AMITIZA [Suspect]
     Active Substance: LUBIPROSTONE
     Dosage: 24 MCG, BID
     Route: 048
     Dates: start: 20150202
  2. LAXOBERON [Concomitant]
     Active Substance: SODIUM PICOSULFATE
     Indication: CONSTIPATION
     Dosage: UNK
     Route: 048
     Dates: start: 20150130
  3. MICARDIS [Concomitant]
     Active Substance: TELMISARTAN
     Indication: HYPERTENSION
     Dosage: 40 MG, QD
     Route: 048
     Dates: start: 20141004
  4. AMLODIPINE [Concomitant]
     Active Substance: AMLODIPINE BESYLATE
     Indication: HYPERTENSION
     Dosage: 5 MG, QD
     Route: 048
     Dates: start: 20141004
  5. UNKNOWN [Concomitant]
     Active Substance: UNSPECIFIED INGREDIENT
     Dosage: UNK
     Route: 048
     Dates: start: 20141004
  6. UNKNOWN [Concomitant]
     Active Substance: UNSPECIFIED INGREDIENT
     Dosage: UNK
     Route: 048
     Dates: start: 20141004
  7. DAIKENCHUTO [Concomitant]
     Active Substance: HERBALS
     Indication: CONSTIPATION
     Dosage: UNK
     Route: 048
     Dates: start: 20141004
  8. UNKNOWN [Concomitant]
     Active Substance: UNSPECIFIED INGREDIENT
     Dosage: UNK
     Route: 048
     Dates: start: 20141004
  9. UNKNOWN [Concomitant]
     Active Substance: UNSPECIFIED INGREDIENT
     Indication: CONSTIPATION
     Dosage: UNK
     Route: 048
     Dates: start: 20141004
  10. SHOKENCHUTO [Concomitant]
     Dosage: UNK
     Route: 048
     Dates: start: 20141004
  11. AMITIZA [Suspect]
     Active Substance: LUBIPROSTONE
     Indication: CONSTIPATION
     Dosage: 24 MCG, BID
     Route: 048
     Dates: start: 20141114, end: 20150123
  12. MAGLAX [Concomitant]
     Active Substance: MAGNESIUM OXIDE
     Indication: CONSTIPATION
     Dosage: 330 MG, TID
     Route: 048
     Dates: start: 20141004
  13. KEISHIKASHAKUYAKUDAIOTO [Concomitant]
     Active Substance: HERBALS
     Indication: CONSTIPATION
     Dosage: UNK
     Route: 048
     Dates: start: 20141004
  14. TSUKUSHI AM [Concomitant]
     Dosage: UNK
     Route: 048
     Dates: start: 20141004

REACTIONS (10)
  - Pain [Recovered/Resolved]
  - Weight increased [Recovered/Resolved]
  - Malaise [Recovered/Resolved]
  - Oedema peripheral [Recovered/Resolved]
  - Cardiac failure [Recovering/Resolving]
  - Dizziness [Recovered/Resolved]
  - Arthralgia [Recovering/Resolving]
  - Hot flush [Recovered/Resolved]
  - Face oedema [Recovered/Resolved]
  - Nausea [Recovered/Resolved]

NARRATIVE: CASE EVENT DATE: 20141128
